FAERS Safety Report 6394924-6 (Version None)
Quarter: 2009Q4

REPORT INFORMATION
  Report Type: 
  Country: None (occurrence: None)
  Receive Date: 20091009
  Receipt Date: 20090930
  Transmission Date: 20100525
  Serious: Yes (Death, Hospitalization)
  Sender: FDA-Public Use
  Company Number: BR-ROCHE-659842

PATIENT
  Sex: Female
  Weight: 61 kg

DRUGS (7)
  1. CAPECITABINE [Suspect]
     Indication: BREAST CANCER
     Route: 048
     Dates: start: 20090528, end: 20090809
  2. HYDROCHLOROTHIAZIDE [Concomitant]
     Indication: HYPERTENSION
     Route: 048
     Dates: start: 20090809, end: 20090811
  3. HYDROCHLOROTHIAZIDE [Concomitant]
     Route: 048
     Dates: start: 20021201, end: 20090808
  4. PROPRANOLOL [Concomitant]
     Indication: HYPERTENSION
     Route: 048
     Dates: start: 20090810, end: 20090810
  5. PROPRANOLOL [Concomitant]
     Route: 048
     Dates: start: 20090809, end: 20090809
  6. PROPRANOLOL [Concomitant]
     Route: 048
     Dates: start: 20021201, end: 20090808
  7. PERMETHRIN [Concomitant]
     Route: 061
     Dates: start: 20090604, end: 20090606

REACTIONS (3)
  - ABDOMINAL PAIN [None]
  - DYSPNOEA [None]
  - RESPIRATORY DISTRESS [None]
